FAERS Safety Report 18366618 (Version 2)
Quarter: 2020Q4

REPORT INFORMATION
  Report Type: Report from Study
  Country: MX (occurrence: MX)
  Receive Date: 20201009
  Receipt Date: 20201016
  Transmission Date: 20210114
  Serious: Yes (Death)
  Sender: FDA-Public Use
  Company Number: NVSC2020MX272899

PATIENT
  Age: 69 Year
  Sex: Male
  Weight: 56 kg

DRUGS (1)
  1. ENTRESTO [Suspect]
     Active Substance: SACUBITRIL\VALSARTAN
     Indication: CARDIAC DISORDER
     Dosage: 100 MG, BID (200 MG ? IN THE MORNING AND 1/2 AT NIGHT)
     Route: 048
     Dates: start: 201809, end: 20191226

REACTIONS (3)
  - Product use in unapproved indication [Unknown]
  - Wrong technique in product usage process [Unknown]
  - Infarction [Fatal]

NARRATIVE: CASE EVENT DATE: 201809
